FAERS Safety Report 12001349 (Version 2)
Quarter: 2016Q1

REPORT INFORMATION
  Report Type: Report from Study
  Country: US (occurrence: US)
  Receive Date: 20160204
  Receipt Date: 20160304
  Transmission Date: 20160526
  Serious: Yes (Other)
  Sender: FDA-Public Use
  Company Number: PHEH2016US002672

PATIENT
  Age: 80 Year
  Sex: Female
  Weight: 68.18 kg

DRUGS (2)
  1. GLEEVEC [Suspect]
     Active Substance: IMATINIB MESYLATE
     Indication: CHRONIC MYELOID LEUKAEMIA
     Dosage: 400 MG, QD
     Route: 048
     Dates: start: 20151021, end: 20151204
  2. GLEEVEC [Suspect]
     Active Substance: IMATINIB MESYLATE
     Dosage: DOSE REDUCTION
     Route: 048

REACTIONS (2)
  - Neutropenia [Unknown]
  - Pancytopenia [Recovered/Resolved]

NARRATIVE: CASE EVENT DATE: 20151204
